FAERS Safety Report 9834374 (Version 1)
Quarter: 2014Q1

REPORT INFORMATION
  Report Type: Report from Study
  Country: GB (occurrence: GB)
  Receive Date: 20140122
  Receipt Date: 20140122
  Transmission Date: 20141002
  Serious: Yes (Other)
  Sender: FDA-Public Use
  Company Number: GB-AMGEN-GBRCT2014003610

PATIENT
  Age: 39 Year
  Sex: Female
  Weight: 116 kg

DRUGS (5)
  1. ETANERCEPT [Suspect]
     Indication: PRODUCT USED FOR UNKNOWN INDICATION
     Dosage: 50 MG, QWK
     Route: 065
     Dates: start: 20110602, end: 20121215
  2. E45 [Concomitant]
     Dosage: UNK
     Dates: start: 20100915
  3. EUMOVATE [Concomitant]
     Dosage: UNK
     Dates: start: 20110412
  4. ORLISTAT [Concomitant]
     Dosage: UNK
     Dates: start: 20120501
  5. FLUOXETINE [Concomitant]
     Dosage: UNK
     Dates: start: 20120115

REACTIONS (1)
  - Abortion induced [Recovered/Resolved]
